FAERS Safety Report 20557698 (Version 1)
Quarter: 2022Q1

REPORT INFORMATION
  Report Type: Spontaneous
  Country: GR (occurrence: None)
  Receive Date: 20220307
  Receipt Date: 20220307
  Transmission Date: 20220423
  Serious: Yes (Hospitalization)
  Sender: FDA-Public Use
  Company Number: GR-Purple Biotech Ltd.-PBL-2022-000004

PATIENT
  Age: 72 Year
  Sex: Female

DRUGS (1)
  1. AMLODIPINE [Suspect]
     Active Substance: AMLODIPINE BESYLATE
     Dosage: 200 MG
     Route: 048

REACTIONS (5)
  - Overdose [Recovering/Resolving]
  - Shock [Recovering/Resolving]
  - Suicide attempt [Recovering/Resolving]
  - Mental disorder [Recovering/Resolving]
  - Acute pulmonary oedema [Recovering/Resolving]
